FAERS Safety Report 6183003-9 (Version None)
Quarter: 2009Q2

REPORT INFORMATION
  Report Type: 
  Country: None (occurrence: None)
  Receive Date: 20090507
  Receipt Date: 20090429
  Transmission Date: 20091009
  Serious: No
  Sender: FDA-Public Use
  Company Number: IT-AMGEN-UK344868

PATIENT
  Sex: Female

DRUGS (2)
  1. NEULASTA [Suspect]
     Indication: NEUTROPENIA
     Route: 058
     Dates: start: 20090319, end: 20090319
  2. UNSPECIFIED ANTINEOPLASTIC AGENT [Concomitant]
     Route: 065
     Dates: end: 20090319

REACTIONS (1)
  - BACK PAIN [None]
